FAERS Safety Report 6709653-6 (Version None)
Quarter: 2010Q2

REPORT INFORMATION
  Report Type: 
  Country: None (occurrence: None)
  Receive Date: 20100430
  Receipt Date: 20100417
  Transmission Date: 20101027
  Serious: Yes (Hospitalization)
  Sender: FDA-Public Use
  Company Number: 2010AP000797

PATIENT
  Age: 70 Year
  Sex: Female

DRUGS (1)
  1. ENALAPRIL MALEATE [Suspect]

REACTIONS (3)
  - ANGIOEDEMA [None]
  - AUTOIMMUNE THYROIDITIS [None]
  - DRUG INEFFECTIVE [None]
